FAERS Safety Report 4688326-8 (Version None)
Quarter: 2005Q2

REPORT INFORMATION
  Report Type: 
  Country: None (occurrence: None)
  Receive Date: 20050609
  Receipt Date: 20050531
  Transmission Date: 20051028
  Serious: Yes (Life-Threatening)
  Sender: FDA-Public Use
  Company Number: 11304

PATIENT
  Age: 25 Year
  Sex: Female

DRUGS (3)
  1. DAUNORUBICIN HCL [Suspect]
     Indication: ACUTE MYELOID LEUKAEMIA
     Dosage: 60 MG/M2 OTH, IV
     Route: 042
     Dates: start: 19910812
  2. CYTARABINE [Suspect]
     Indication: ACUTE MYELOID LEUKAEMIA
     Dosage: 100 MG/M2, IV
     Route: 042
     Dates: start: 19910812
  3. CARBIMAZOLE [Concomitant]

REACTIONS (9)
  - AGITATION [None]
  - ANXIETY [None]
  - BASEDOW'S DISEASE [None]
  - BONE MARROW TRANSPLANT [None]
  - DIARRHOEA [None]
  - HEADACHE [None]
  - PYREXIA [None]
  - SINUS TACHYCARDIA [None]
  - THYROTOXIC CRISIS [None]
